FAERS Safety Report 16033906 (Version 2)
Quarter: 2019Q1

REPORT INFORMATION
  Report Type: Report from Study
  Country: GB (occurrence: GB)
  Receive Date: 20190305
  Receipt Date: 20190315
  Transmission Date: 20190418
  Serious: Yes (Death)
  Sender: FDA-Public Use
  Company Number: GB-CELLTRION INC.-2019GB018496

PATIENT

DRUGS (1)
  1. TRUXIMA [Suspect]
     Active Substance: RITUXIMAB-ABBS
     Indication: DIFFUSE LARGE B-CELL LYMPHOMA
     Dosage: 800MG/ 375MG (PER M2) 3 WEEKLY FOR 3 CYCLES
     Route: 042
     Dates: start: 20180417, end: 20180531

REACTIONS (1)
  - Diffuse large B-cell lymphoma refractory [Fatal]
